FAERS Safety Report 24701650 (Version 1)
Quarter: 2024Q4

REPORT INFORMATION
  Report Type: Spontaneous
  Country: US (occurrence: US)
  Receive Date: 20241205
  Receipt Date: 20241205
  Transmission Date: 20250115
  Serious: Yes (Other)
  Sender: ELI LILLY AND COMPANY
  Company Number: US-ELI_LILLY_AND_COMPANY-US202411016011

PATIENT
  Age: 61 Year
  Sex: Female

DRUGS (32)
  1. DULOXETINE HYDROCHLORIDE [Suspect]
     Active Substance: DULOXETINE HYDROCHLORIDE
     Indication: Product used for unknown indication
     Dosage: UNK, UNKNOWN
     Route: 065
  2. INGREZZA [Suspect]
     Active Substance: VALBENAZINE
     Indication: Tardive dyskinesia
     Dosage: 40 MG, DAILY
     Route: 048
     Dates: start: 20230605, end: 20230611
  3. INGREZZA [Suspect]
     Active Substance: VALBENAZINE
     Dosage: TITRATED TO 80 MG, DAILY
     Route: 048
     Dates: start: 20230612, end: 20231218
  4. INGREZZA [Suspect]
     Active Substance: VALBENAZINE
     Dosage: 60 MG, DAILY
     Route: 048
     Dates: start: 20231219, end: 20240311
  5. INGREZZA [Suspect]
     Active Substance: VALBENAZINE
     Dosage: 80 MG, DAILY
     Route: 048
     Dates: start: 20240312, end: 20240501
  6. INGREZZA [Suspect]
     Active Substance: VALBENAZINE
     Dosage: 60 MG, BID
     Route: 048
     Dates: start: 20240502, end: 20240610
  7. INGREZZA [Suspect]
     Active Substance: VALBENAZINE
     Dosage: 80 MG, DAILY
     Route: 048
     Dates: start: 20240611, end: 20240718
  8. INGREZZA [Suspect]
     Active Substance: VALBENAZINE
     Dosage: 40 MG, BID
     Route: 048
     Dates: start: 20240719
  9. PRIMIDONE [Suspect]
     Active Substance: PRIMIDONE
     Indication: Tremor
     Dosage: UNK, UNKNOWN
     Route: 065
  10. RIVASTIGMINE [Suspect]
     Active Substance: RIVASTIGMINE
     Indication: Product used for unknown indication
     Dosage: UNK, UNKNOWN
     Route: 065
  11. AUSTEDO [Suspect]
     Active Substance: DEUTETRABENAZINE
     Indication: Product used for unknown indication
     Dosage: UNK, UNKNOWN
     Route: 065
  12. LEXAPRO [Concomitant]
     Active Substance: ESCITALOPRAM OXALATE
     Indication: Product used for unknown indication
     Dosage: UNK, UNKNOWN
     Route: 065
  13. LITHIUM [Concomitant]
     Active Substance: LITHIUM
     Indication: Product used for unknown indication
     Dosage: UNK, UNKNOWN
     Route: 065
  14. ZIPRASIDONE [Concomitant]
     Active Substance: ZIPRASIDONE
     Indication: Product used for unknown indication
     Dosage: UNK, UNKNOWN
     Route: 065
  15. LASIX [Concomitant]
     Active Substance: FUROSEMIDE
     Indication: Product used for unknown indication
     Dosage: UNK, UNKNOWN
     Route: 065
  16. MINERALS\VITAMINS [Concomitant]
     Active Substance: MINERALS\VITAMINS
     Indication: Product used for unknown indication
     Dosage: UNK, UNKNOWN
     Route: 065
  17. IBUPROFEN [Concomitant]
     Active Substance: IBUPROFEN
     Indication: Product used for unknown indication
     Dosage: UNK, UNKNOWN
     Route: 065
  18. BREZTRI [Concomitant]
     Active Substance: BUDESONIDE\FORMOTEROL\GLYCOPYRROLATE
     Indication: Product used for unknown indication
     Dosage: UNK, UNKNOWN
     Route: 065
  19. VALACYCLOVIR HYDROCHLORIDE [Concomitant]
     Active Substance: VALACYCLOVIR HYDROCHLORIDE
     Indication: Product used for unknown indication
     Dosage: UNK, UNKNOWN
     Route: 065
  20. METHYLPHENIDATE [Concomitant]
     Active Substance: METHYLPHENIDATE
     Indication: Product used for unknown indication
     Dosage: UNK, UNKNOWN
     Route: 065
  21. VIBERZI [Concomitant]
     Active Substance: ELUXADOLINE
     Indication: Product used for unknown indication
     Dosage: UNK, UNKNOWN
     Route: 065
  22. ACETAMINOPHEN\OXYCODONE HYDROCHLORIDE [Concomitant]
     Active Substance: ACETAMINOPHEN\OXYCODONE HYDROCHLORIDE
     Indication: Product used for unknown indication
     Dosage: UNK, UNKNOWN
     Route: 065
  23. MONTELUKAST [Concomitant]
     Active Substance: MONTELUKAST
     Indication: Product used for unknown indication
     Dosage: UNK, UNKNOWN
     Route: 065
  24. REFRESH TEARS [Concomitant]
     Active Substance: CARBOXYMETHYLCELLULOSE SODIUM
     Indication: Product used for unknown indication
     Dosage: UNK, UNKNOWN
     Route: 065
  25. PREDNISOLONE ACETATE [Concomitant]
     Active Substance: PREDNISOLONE ACETATE
     Indication: Product used for unknown indication
     Dosage: UNK, UNKNOWN
     Route: 065
  26. ATORVASTATIN [Concomitant]
     Active Substance: ATORVASTATIN
     Indication: Product used for unknown indication
     Dosage: UNK, UNKNOWN
     Route: 065
  27. ASPIRIN [Concomitant]
     Active Substance: ASPIRIN
     Indication: Product used for unknown indication
     Dosage: UNK, UNKNOWN
     Route: 065
  28. METHOCARBAMOL [Concomitant]
     Active Substance: METHOCARBAMOL
     Indication: Product used for unknown indication
  29. CLOTRIMAZOLE [Concomitant]
     Active Substance: CLOTRIMAZOLE
     Indication: Product used for unknown indication
     Dosage: UNK, UNKNOWN
     Route: 065
  30. GEODON [Concomitant]
     Active Substance: ZIPRASIDONE HYDROCHLORIDE\ZIPRASIDONE MESYLATE
     Indication: Product used for unknown indication
     Dosage: UNK, UNKNOWN
     Route: 065
  31. DICLOFENAC SODIUM [Concomitant]
     Active Substance: DICLOFENAC SODIUM
     Indication: Product used for unknown indication
     Dosage: UNK, UNKNOWN
     Route: 065
  32. VITAMIN D NOS [Concomitant]
     Active Substance: CHOLECALCIFEROL\ERGOCALCIFEROL
     Indication: Product used for unknown indication
     Dosage: UNK, UNKNOWN
     Route: 065

REACTIONS (24)
  - Loss of consciousness [Unknown]
  - Axonal and demyelinating polyneuropathy [Unknown]
  - Ankle fracture [Unknown]
  - Hallucination [Unknown]
  - Fall [Unknown]
  - Diabetes mellitus [Unknown]
  - Sneezing [Unknown]
  - Rhinorrhoea [Unknown]
  - Serum ferritin increased [Unknown]
  - Muscular weakness [Unknown]
  - Stress [Unknown]
  - Memory impairment [Unknown]
  - Depression [Unknown]
  - Thyroid disorder [Unknown]
  - Vitamin B12 deficiency [Unknown]
  - Sensory disturbance [Unknown]
  - Cough [Unknown]
  - Gait disturbance [Unknown]
  - Headache [Unknown]
  - Tremor [Unknown]
  - Restless legs syndrome [Unknown]
  - Anxiety [Unknown]
  - Neck pain [Unknown]
  - Back pain [Unknown]

NARRATIVE: CASE EVENT DATE: 20230801
